FAERS Safety Report 18221485 (Version 4)
Quarter: 2020Q4

REPORT INFORMATION
  Report Type: Spontaneous
  Country: US (occurrence: US)
  Receive Date: 20200902
  Receipt Date: 20201030
  Transmission Date: 20210113
  Serious: No
  Sender: FDA-Public Use
  Company Number: US-SA-2020SA233004

PATIENT

DRUGS (1)
  1. ENOXAPARIN SODIUM - WINTHROP [Suspect]
     Active Substance: ENOXAPARIN SODIUM
     Indication: RENAL SURGERY
     Dosage: 100 MG, BID

REACTIONS (3)
  - Injection site pain [Unknown]
  - Needle issue [Unknown]
  - Fear of injection [Unknown]
